FAERS Safety Report 15066095 (Version 3)
Quarter: 2024Q3

REPORT INFORMATION
  Report Type: Spontaneous
  Country: US (occurrence: US)
  Receive Date: 20180626
  Receipt Date: 20240903
  Transmission Date: 20241017
  Serious: No
  Sender: VERTEX
  Company Number: US-VERTEX PHARMACEUTICALS-2018-003888

PATIENT
  Age: 5 Year
  Sex: Female

DRUGS (3)
  1. KALYDECO [Suspect]
     Active Substance: IVACAFTOR
     Indication: Cystic fibrosis
     Dosage: 75 MG
     Route: 048
     Dates: start: 20170923
  2. KALYDECO [Suspect]
     Active Substance: IVACAFTOR
     Dosage: INCREASED DOSE
     Route: 048
     Dates: start: 20180616, end: 20180618
  3. KALYDECO [Suspect]
     Active Substance: IVACAFTOR
     Dosage: 75 MG (REDUCED DOSE)
     Route: 048
     Dates: start: 20180619

REACTIONS (12)
  - Anxiety [Unknown]
  - Mood swings [Unknown]
  - Cough [Not Recovered/Not Resolved]
  - Pyrexia [Recovered/Resolved]
  - Vomiting [Recovered/Resolved]
  - Nausea [Recovered/Resolved]
  - Ear pain [Not Recovered/Not Resolved]
  - Abdominal pain upper [Recovered/Resolved]
  - Oropharyngeal pain [Not Recovered/Not Resolved]
  - Diarrhoea [Recovered/Resolved]
  - Depression [Unknown]
  - Attention deficit hyperactivity disorder [Unknown]

NARRATIVE: CASE EVENT DATE: 20170901
